FAERS Safety Report 15473340 (Version 2)
Quarter: 2018Q4

REPORT INFORMATION
  Report Type: Spontaneous
  Country: DE (occurrence: DE)
  Receive Date: 20181008
  Receipt Date: 20181120
  Transmission Date: 20190205
  Serious: Yes (Other)
  Sender: FDA-Public Use
  Company Number: DE-BAYER-2018-017430

PATIENT
  Age: 42 Year
  Sex: Female
  Weight: 87 kg

DRUGS (1)
  1. MIRENA [Suspect]
     Active Substance: LEVONORGESTREL
     Indication: CONTRACEPTION
     Dosage: 20 MCG/24HR, CONT
     Route: 015
     Dates: start: 20150126

REACTIONS (6)
  - Device dislocation [None]
  - Placental disorder [None]
  - Amenorrhoea [None]
  - Gestational diabetes [None]
  - Pregnancy with contraceptive device [None]
  - Drug ineffective [None]

NARRATIVE: CASE EVENT DATE: 201709
